FAERS Safety Report 8494277-3 (Version None)
Quarter: 2012Q3

REPORT INFORMATION
  Report Type: 
  Country: None (occurrence: None)
  Receive Date: 20120709
  Receipt Date: 20120706
  Transmission Date: 20120928
  Serious: Yes (Other)
  Sender: FDA-Public Use
  Company Number: PHHY2012AR058043

PATIENT
  Sex: Female

DRUGS (4)
  1. DIOVAN [Suspect]
     Dosage: 320 MG, DAILY
  2. DIOVAN [Suspect]
     Indication: HYPERTENSION
     Dosage: 160 MG,DAILY
     Dates: start: 20100101
  3. CORVIS [Concomitant]
  4. DIOVAN [Suspect]
     Dosage: 240 MG,DAILY

REACTIONS (2)
  - HYPERTENSION [None]
  - BRONCHOSPASM [None]
